FAERS Safety Report 5371081-6 (Version None)
Quarter: 2007Q2

REPORT INFORMATION
  Report Type: 
  Country: None (occurrence: None)
  Receive Date: 20070626
  Receipt Date: 20070618
  Transmission Date: 20071010
  Serious: Yes (Other)
  Sender: FDA-Public Use
  Company Number: US-PFIZER INC-2007049972

PATIENT
  Sex: Female
  Weight: 61.363 kg

DRUGS (3)
  1. SOLU-MEDROL [Suspect]
     Indication: ASTHMA
     Dosage: TEXT:60 MG
  2. ALBUTEROL [Concomitant]
  3. ALL OTHER THERAPEUTIC PRODUCTS [Concomitant]

REACTIONS (2)
  - OSTEOARTHRITIS [None]
  - OSTEONECROSIS [None]
